FAERS Safety Report 8601078-1 (Version None)
Quarter: 2012Q2

REPORT INFORMATION
  Report Type: 
  Country: None (occurrence: None)
  Receive Date: 20120423
  Receipt Date: 20100402
  Transmission Date: 20120825
  Serious: Yes (Hospitalization)
  Sender: FDA-Public Use
  Company Number: PHEH2010US02752

PATIENT
  Age: 77 Year
  Sex: Female

DRUGS (2)
  1. GLUCOSAMINE W/CHONDROITIN (CHONDROITIN SULFATE, GLUCOSAMINE) [Concomitant]
  2. FEMARA [Suspect]
     Indication: BREAST CANCER
     Dates: start: 20080101

REACTIONS (10)
  - THROMBOSIS [None]
  - RENAL DISORDER [None]
  - OSTEOPENIA [None]
  - PULMONARY THROMBOSIS [None]
  - FLUID RETENTION [None]
  - BACK PAIN [None]
  - WEIGHT INCREASED [None]
  - ARTHRALGIA [None]
  - DYSPNOEA [None]
  - JOINT SWELLING [None]
